FAERS Safety Report 4472794-0 (Version None)
Quarter: 2004Q4

REPORT INFORMATION
  Report Type: 
  Country: None (occurrence: None)
  Receive Date: 20041012
  Receipt Date: 20041012
  Transmission Date: 20050328
  Serious: Yes (Life-Threatening)
  Sender: FDA-Public Use
  Company Number: None

PATIENT
  Sex: Female
  Weight: 77.1115 kg

DRUGS (1)
  1. CELELBREX  200 MG  SEARLE [Suspect]
     Indication: OSTEOARTHRITIS
     Dosage: ONE DAILY
     Dates: start: 20041005, end: 20041006

REACTIONS (1)
  - TOXIC EPIDERMAL NECROLYSIS [None]
